FAERS Safety Report 25230824 (Version 2)
Quarter: 2025Q3

REPORT INFORMATION
  Report Type: Spontaneous
  Country: US (occurrence: US)
  Receive Date: 20250423
  Receipt Date: 20250707
  Transmission Date: 20251021
  Serious: No
  Sender: SANOFI AVENTIS
  Company Number: US-SA-2025SA116448

PATIENT
  Age: 9 Year
  Sex: Female

DRUGS (1)
  1. DUPIXENT [Suspect]
     Active Substance: DUPILUMAB
     Indication: Asthma
     Dosage: 300.000MG Q4W
     Route: 058
     Dates: start: 20250318, end: 202504

REACTIONS (6)
  - Skin swelling [Not Recovered/Not Resolved]
  - Nasal congestion [Unknown]
  - Ear discomfort [Unknown]
  - Productive cough [Not Recovered/Not Resolved]
  - Ocular hyperaemia [Unknown]
  - Pruritus [Not Recovered/Not Resolved]

NARRATIVE: CASE EVENT DATE: 20250401
